FAERS Safety Report 17999746 (Version 1)
Quarter: 2020Q3

REPORT INFORMATION
  Report Type: Spontaneous
  Country: JP (occurrence: JP)
  Receive Date: 20200709
  Receipt Date: 20200709
  Transmission Date: 20201103
  Serious: Yes (Hospitalization)
  Sender: FDA-Public Use
  Company Number: JP-IPSEN BIOPHARMACEUTICALS, INC.-2020-11262

PATIENT
  Age: 80 Year
  Sex: Female

DRUGS (3)
  1. LEVOFOLINATE [Concomitant]
     Active Substance: LEVOLEUCOVORIN CALCIUM
     Indication: PANCREATIC CARCINOMA RECURRENT
     Dosage: PER DAY
     Route: 042
     Dates: start: 20200609, end: 20200623
  2. ONIVYDE [Suspect]
     Active Substance: IRINOTECAN HYDROCHLORIDE
     Indication: PANCREATIC CARCINOMA RECURRENT
     Dosage: PER DAY
     Route: 042
     Dates: start: 20200609, end: 20200623
  3. 5 FU [Suspect]
     Active Substance: FLUOROURACIL
     Indication: PANCREATIC CARCINOMA RECURRENT
     Dosage: PER DAY
     Route: 042
     Dates: start: 20200609, end: 20200623

REACTIONS (2)
  - Neutropenia [Not Recovered/Not Resolved]
  - Cellulitis [Not Recovered/Not Resolved]

NARRATIVE: CASE EVENT DATE: 20200623
